FAERS Safety Report 24150759 (Version 2)
Quarter: 2024Q3

REPORT INFORMATION
  Report Type: Spontaneous
  Country: BR (occurrence: None)
  Receive Date: 20240730
  Receipt Date: 20240809
  Transmission Date: 20241016
  Serious: Yes (Other)
  Sender: ASTRAZENECA
  Company Number: 2024A169926

PATIENT
  Sex: Female

DRUGS (1)
  1. CRESTOR [Suspect]
     Active Substance: ROSUVASTATIN CALCIUM
     Indication: Blood cholesterol increased
     Dosage: ONCE DAILY
     Route: 048
     Dates: end: 2021

REACTIONS (9)
  - Dengue fever [Recovered/Resolved]
  - Cerebral arteriosclerosis [Not Recovered/Not Resolved]
  - Muscle spasms [Recovered/Resolved]
  - Myopathy [Recovered/Resolved]
  - Loss of control of legs [Recovered/Resolved]
  - Gait disturbance [Recovered/Resolved]
  - Blood cholesterol increased [Unknown]
  - Muscle contractions involuntary [Not Recovered/Not Resolved]
  - Myalgia [Not Recovered/Not Resolved]
